FAERS Safety Report 4919044-6 (Version None)
Quarter: 2006Q1

REPORT INFORMATION
  Report Type: 
  Country: None (occurrence: None)
  Receive Date: 20060222
  Receipt Date: 20060210
  Transmission Date: 20060701
  Serious: Yes (Death, Hospitalization)
  Sender: FDA-Public Use
  Company Number: PHHO2006CA02751

PATIENT
  Age: 72 Year
  Sex: Female
  Weight: 70 kg

DRUGS (2)
  1. SANDOSTATIN LAR [Suspect]
     Indication: DIABETIC RETINOPATHY
     Dosage: 30MG EVERY 4 WEEKS
     Route: 030
     Dates: start: 20051121, end: 20051221
  2. SANDOSTATIN LAR [Suspect]
     Dates: end: 20060117

REACTIONS (4)
  - CEREBROVASCULAR ACCIDENT [None]
  - CONCOMITANT DISEASE PROGRESSION [None]
  - FACIAL PALSY [None]
  - PARAESTHESIA [None]
